FAERS Safety Report 25539981 (Version 1)
Quarter: 2025Q3

REPORT INFORMATION
  Report Type: Spontaneous
  Country: US (occurrence: US)
  Receive Date: 20250710
  Receipt Date: 20250710
  Transmission Date: 20251021
  Serious: No
  Sender: MERCK SHARP & DOHME LLC
  Company Number: US-009507513-2300099

PATIENT
  Age: 79 Year
  Sex: Male

DRUGS (2)
  1. BELZUTIFAN [Suspect]
     Active Substance: BELZUTIFAN
     Indication: Renal cancer
     Route: 065
     Dates: start: 20250403
  2. CABOMETYX [Suspect]
     Active Substance: CABOZANTINIB S-MALATE
     Indication: Renal cancer
     Dosage: 40 MG, QD
     Route: 048
     Dates: start: 20250403

REACTIONS (5)
  - Pruritus [Unknown]
  - Diarrhoea [Unknown]
  - Fatigue [Unknown]
  - Blood thyroid stimulating hormone increased [Unknown]
  - Haemoglobin decreased [Unknown]

NARRATIVE: CASE EVENT DATE: 20250101
